FAERS Safety Report 8055172-7 (Version None)
Quarter: 2011Q4

REPORT INFORMATION
  Report Type: 
  Country: None (occurrence: None)
  Receive Date: 20111213
  Receipt Date: 20110829
  Transmission Date: 20120403
  Serious: No
  Sender: FDA-Public Use
  Company Number: 2011SP041056

PATIENT
  Age: 43 Year
  Sex: Female

DRUGS (4)
  1. KLONOPIN [Concomitant]
  2. PERCOCET [Concomitant]
  3. SAPHRIS [Suspect]
     Indication: BIPOLAR I DISORDER
     Dosage: 5 MG; BID; SL
     Route: 060
     Dates: start: 20110822, end: 20110827
  4. SAPHRIS [Suspect]
     Indication: MAJOR DEPRESSION
     Dosage: 5 MG; BID; SL
     Route: 060
     Dates: start: 20110822, end: 20110827

REACTIONS (1)
  - BALANCE DISORDER [None]
